FAERS Safety Report 16974292 (Version 1)
Quarter: 2019Q4

REPORT INFORMATION
  Report Type: Spontaneous
  Country: GB (occurrence: GB)
  Receive Date: 20191030
  Receipt Date: 20191030
  Transmission Date: 20200122
  Serious: Yes (Disabling)
  Sender: FDA-Public Use
  Company Number: GB-PFIZER INC-2019464242

PATIENT
  Age: 45 Year
  Sex: Female

DRUGS (4)
  1. FLUOXETINE [Concomitant]
     Active Substance: FLUOXETINE HYDROCHLORIDE
     Dosage: 20 MG, 1X/DAY
  2. ADCAL [CALCIUM CARBONATE] [Concomitant]
     Dosage: 3000 MG, 1X/DAY (PROSTRAKAN LTD)
  3. CIPROFLOXACIN HCL [Suspect]
     Active Substance: CIPROFLOXACIN HYDROCHLORIDE
     Indication: UROSEPSIS
     Dosage: UNK
     Route: 042
  4. AMOXICILLIN. [Concomitant]
     Active Substance: AMOXICILLIN
     Indication: PROPHYLAXIS URINARY TRACT INFECTION
     Dosage: 250 MG, 1X/DAY (WITHHELD WHILST ON INTRAVENOUS ANTIBIOTICS)

REACTIONS (3)
  - Flushing [Recovered/Resolved]
  - Erythema [Recovered/Resolved]
  - Phlebitis [Recovered/Resolved]
